FAERS Safety Report 23054935 (Version 1)
Quarter: 2023Q4

REPORT INFORMATION
  Report Type: Spontaneous
  Country: CA (occurrence: CA)
  Receive Date: 20231011
  Receipt Date: 20231011
  Transmission Date: 20240110
  Serious: Yes (Other)
  Sender: FDA-Public Use
  Company Number: CA-ADVANZ PHARMA-202310008912

PATIENT

DRUGS (2)
  1. PILOCARPINE [Suspect]
     Active Substance: PILOCARPINE
     Indication: Glaucoma
     Dosage: UNK
     Route: 065
  2. PILOCARPINE [Suspect]
     Active Substance: PILOCARPINE
     Indication: Glaucoma
     Dosage: UNK (EYE DROPS, SOLUTION)
     Route: 065

REACTIONS (2)
  - Blindness transient [Unknown]
  - Product availability issue [Unknown]
